FAERS Safety Report 24841390 (Version 1)
Quarter: 2025Q1

REPORT INFORMATION
  Report Type: Spontaneous
  Country: US (occurrence: US)
  Receive Date: 20250114
  Receipt Date: 20250114
  Transmission Date: 20250408
  Serious: Yes (Hospitalization, Other)
  Sender: GLAXOSMITHKLINE
  Company Number: US-GSK-US2025001501

PATIENT

DRUGS (3)
  1. WELLBUTRIN [Suspect]
     Active Substance: BUPROPION HYDROCHLORIDE
     Indication: Depression
  2. PACLITAXEL [Suspect]
     Active Substance: PACLITAXEL
     Indication: Depression
     Dates: start: 20020521, end: 20020605
  3. PACLITAXEL [Suspect]
     Active Substance: PACLITAXEL
     Indication: Social anxiety disorder

REACTIONS (10)
  - Bipolar I disorder [Recovering/Resolving]
  - Suicidal ideation [Recovering/Resolving]
  - Mania [Recovering/Resolving]
  - Condition aggravated [Recovering/Resolving]
  - Hallucination, visual [Unknown]
  - Hallucination, auditory [Unknown]
  - Hypersexuality [Recovering/Resolving]
  - Self-injurious ideation [Recovering/Resolving]
  - Insomnia [Recovering/Resolving]
  - Pressure of speech [Recovering/Resolving]

NARRATIVE: CASE EVENT DATE: 20020605
